FAERS Safety Report 21708648 (Version 2)
Quarter: 2022Q4

REPORT INFORMATION
  Report Type: Spontaneous
  Country: FR (occurrence: FR)
  Receive Date: 20221210
  Receipt Date: 20221219
  Transmission Date: 20230112
  Serious: Yes (Other)
  Sender: FDA-Public Use
  Company Number: FR-BAXTER-2022BAX025522

PATIENT
  Age: 71 Year
  Sex: Male

DRUGS (4)
  1. DEXAMETHASONE [Suspect]
     Active Substance: DEXAMETHASONE
     Indication: Product used for unknown indication
     Dosage: 40 MG/DOSE 4 DOSE(S)/WEEK 1 WEEK(S)/CYCLE, TREATMENT LINE NO. 5, DURATION: 3.7 MONTHS
     Route: 065
     Dates: end: 20201201
  2. CYCLOPHOSPHAMIDE [Suspect]
     Active Substance: CYCLOPHOSPHAMIDE
     Indication: Product used for unknown indication
     Dosage: 700 MG/DOSE 4 DOSE(S)/WEEK 1 WEEK(S)/CYCLE, TREATMENT LINE NO. 5, DURATION: 3.7 MONTHS
     Route: 065
     Dates: end: 20201201
  3. ETOPOSIDE [Suspect]
     Active Substance: ETOPOSIDE
     Indication: Product used for unknown indication
     Dosage: 70 MG/DOSE 4 DOSE(S)/WEEK 1 WEEK(S)/CYCLE, TREATMENT LINE NO. 5, DURATION: 3.7 MONTHS
     Route: 065
  4. DOXORUBICIN HYDROCHLORIDE [Suspect]
     Active Substance: DOXORUBICIN HYDROCHLORIDE
     Indication: Product used for unknown indication
     Dosage: UNK 40 MG/DOSE 1 DOSE(S)/WEEK 1 WEEK(S)/CYCLE, TREATMENT LINE NO. 5, DURATION: 3.7 MONTHS
     Route: 065
     Dates: end: 20201201

REACTIONS (1)
  - Pancytopenia [Unknown]

NARRATIVE: CASE EVENT DATE: 20201201
